FAERS Safety Report 4663261-X (Version None)
Quarter: 2005Q2

REPORT INFORMATION
  Report Type: 
  Country: None (occurrence: None)
  Receive Date: 20050513
  Receipt Date: 20050504
  Transmission Date: 20051028
  Serious: Yes (Life-Threatening, Hospitalization, Disabling)
  Sender: FDA-Public Use
  Company Number: 2005-04-0086

PATIENT
  Age: 45 Year
  Sex: Male
  Weight: 80 kg

DRUGS (13)
  1. VIRAFERONPEG [Suspect]
     Indication: HEPATITIS C
     Dosage: 96 UG QW SUBCUTANEOUS
     Route: 058
     Dates: start: 20040201, end: 20050124
  2. REBETOL [Suspect]
     Indication: HEPATITIS C
     Dosage: 800 MG QD ORAL
     Route: 048
     Dates: start: 20040201, end: 20050124
  3. FERROUS SULFATE TAB [Suspect]
     Indication: ANAEMIA
     Dosage: 1 QD ORAL
     Route: 048
     Dates: start: 20041013, end: 20050124
  4. SPECIAFOLDINE TABLETS [Suspect]
     Indication: ANAEMIA
     Dosage: 2 QD ORAL
     Route: 048
     Dates: start: 20041013, end: 20050124
  5. CALCIUM CARBONATE/CHOLECALCIFEROL TABLETS [Suspect]
     Indication: OSTEOPOROSIS PROPHYLAXIS
     Dosage: 1 QD ORAL
     Route: 048
     Dates: start: 20041013, end: 20050124
  6. LOPERAMIDE [Suspect]
     Indication: DIARRHOEA
     Dosage: PRN ORAL
     Route: 048
     Dates: start: 20041013, end: 20050124
  7. HEXAQUINE TABLETS [Suspect]
     Indication: MUSCLE SPASMS
     Dosage: PRN ORAL
     Route: 048
     Dates: start: 20041013, end: 20050124
  8. RIVOTRIL [Suspect]
     Indication: ANXIETY
     Dosage: 6 MG QD ORAL
     Route: 048
  9. DIAZEPAM [Suspect]
     Indication: ANXIETY
     Dosage: 20 MG QD ORAL
     Route: 048
  10. ATHYMIL TABLETS [Suspect]
     Indication: DEPRESSION
     Dosage: 30 MG QD ORAL
     Route: 048
  11. STILNOX TABLETS [Suspect]
     Indication: INSOMNIA
     Dosage: 1 TAB QD ORAL
     Route: 048
  12. ROHYPNOL TABLETS [Suspect]
     Indication: INSOMNIA
  13. NUTRITIONAL SUPPLEMENTS [Suspect]
     Indication: MALNUTRITION
     Dosage: 1 QD ORAL
     Route: 048
     Dates: start: 20041013, end: 20050124

REACTIONS (17)
  - AMYOTROPHIC LATERAL SCLEROSIS [None]
  - ANAEMIA [None]
  - ASTHENIA [None]
  - BALANCE DISORDER [None]
  - CEREBELLAR SYNDROME [None]
  - CONSTIPATION [None]
  - DIARRHOEA [None]
  - DIFFICULTY IN WALKING [None]
  - DYSARTHRIA [None]
  - GENERAL PHYSICAL HEALTH DETERIORATION [None]
  - MALNUTRITION [None]
  - MICTURITION URGENCY [None]
  - MUSCLE SPASMS [None]
  - PAIN [None]
  - POLYNEUROPATHY [None]
  - SENSORIMOTOR DISORDER [None]
  - THERAPEUTIC RESPONSE UNEXPECTED [None]
